FAERS Safety Report 5600254-X (Version None)
Quarter: 2008Q1

REPORT INFORMATION
  Report Type: 
  Country: None (occurrence: None)
  Receive Date: 20080123
  Receipt Date: 20080114
  Transmission Date: 20080703
  Serious: Yes (Other)
  Sender: FDA-Public Use
  Company Number: DE-JNJFOC-20070705636

PATIENT
  Sex: Male

DRUGS (2)
  1. IMODIUM [Suspect]
  2. IMODIUM [Suspect]
     Indication: DRUG USE FOR UNKNOWN INDICATION

REACTIONS (2)
  - DEPENDENCE [None]
  - DIARRHOEA [None]
